FAERS Safety Report 8241100-8 (Version None)
Quarter: 2012Q1

REPORT INFORMATION
  Report Type: 
  Country: None (occurrence: None)
  Receive Date: 20120328
  Receipt Date: 20120321
  Transmission Date: 20120608
  Serious: Yes (Hospitalization)
  Sender: FDA-Public Use
  Company Number: US-GLAXOSMITHKLINE-A0971368A

PATIENT
  Age: 44 Year
  Sex: Female

DRUGS (3)
  1. FLOLAN [Suspect]
     Indication: PULMONARY ARTERIAL HYPERTENSION
     Dosage: 96NGKM SEE DOSAGE TEXT
     Route: 042
     Dates: start: 20090115
  2. SPIRONOLACTONE [Concomitant]
     Dosage: 100MG PER DAY
  3. BUMEX [Concomitant]
     Dosage: 3MG TWICE PER DAY

REACTIONS (2)
  - FLUID RETENTION [None]
  - SWELLING [None]
